FAERS Safety Report 23553772 (Version 3)
Quarter: 2024Q1

REPORT INFORMATION
  Report Type: Spontaneous
  Country: PL (occurrence: PL)
  Receive Date: 20240222
  Receipt Date: 20240307
  Transmission Date: 20240410
  Serious: Yes (Death, Other)
  Sender: FDA-Public Use
  Company Number: PL-002147023-NVSC2024PL032740

PATIENT
  Age: 63 Year
  Sex: Male

DRUGS (6)
  1. LUTATHERA [Suspect]
     Active Substance: LUTETIUM OXODOTREOTIDE LU-177
     Indication: Neuroendocrine tumour
     Dosage: 7.4 GBQ
     Route: 042
     Dates: start: 20240131, end: 20240131
  2. PANCRELIPASE [Concomitant]
     Active Substance: PANCRELIPASE
     Indication: Product used for unknown indication
     Dosage: UNK, 3 X 2 CAPS
     Route: 048
  3. DEBUTIR [Concomitant]
     Indication: Product used for unknown indication
     Dosage: 150 MG, 3 X 1 CAPS
     Route: 048
  4. DIMETHICONE [Concomitant]
     Active Substance: DIMETHICONE
     Indication: Product used for unknown indication
     Dosage: UNK (3 X 2 CAPS)
     Route: 048
  5. SCOPOLAN [Concomitant]
     Indication: Pain
     Dosage: UNK
     Route: 065
  6. DEXAMETHASONE [Concomitant]
     Active Substance: DEXAMETHASONE
     Indication: Pain
     Dosage: UNK
     Route: 065

REACTIONS (11)
  - Death [Fatal]
  - Intestinal obstruction [Unknown]
  - Abdominal pain [Unknown]
  - Gastrointestinal hypomotility [Unknown]
  - Constipation [Unknown]
  - Decreased appetite [Unknown]
  - Faecal vomiting [Unknown]
  - Asthenia [Unknown]
  - Weight decreased [Unknown]
  - Blood pressure decreased [Unknown]
  - Dizziness [Unknown]

NARRATIVE: CASE EVENT DATE: 20240214
